FAERS Safety Report 17815065 (Version 1)
Quarter: 2020Q2

REPORT INFORMATION
  Report Type: Spontaneous
  Country: US (occurrence: US)
  Receive Date: 20200521
  Receipt Date: 20200521
  Transmission Date: 20200714
  Serious: Yes (Disabling)
  Sender: FDA-Public Use
  Company Number: None

PATIENT
  Age: 63 Year
  Sex: Female
  Weight: 76.5 kg

DRUGS (7)
  1. ENTRESTO [Suspect]
     Active Substance: SACUBITRIL\VALSARTAN
     Indication: ATRIAL FIBRILLATION
     Dosage: ?          QUANTITY:1 TABLET(S);?
     Route: 048
     Dates: start: 20190312, end: 20190920
  2. KROGERS WOMENS GUMMIE [Concomitant]
  3. VITAMINS USED IN ROTATION [Concomitant]
  4. 80 MG ASPRPIN [Concomitant]
  5. CENTRUM SIVER [Concomitant]
  6. HONU ME TIME VITAMIN [Concomitant]
  7. AMIODARONE [Suspect]
     Active Substance: AMIODARONE
     Indication: ATRIAL FIBRILLATION
     Dosage: ?          QUANTITY:1 TABLET(S);?
     Route: 048
     Dates: start: 20190412, end: 20191201

REACTIONS (6)
  - Sepsis [None]
  - Paralysis [None]
  - Asthenia [None]
  - Neuropathy peripheral [None]
  - Malaise [None]
  - Cognitive disorder [None]

NARRATIVE: CASE EVENT DATE: 20190228
